FAERS Safety Report 13967377 (Version 1)
Quarter: 2017Q3

REPORT INFORMATION
  Report Type: Spontaneous
  Country: US (occurrence: US)
  Receive Date: 20170914
  Receipt Date: 20170914
  Transmission Date: 20171128
  Serious: Yes (Other)
  Sender: FDA-Public Use
  Company Number: US-PFIZER INC-2017393229

PATIENT
  Age: 76 Year
  Sex: Male

DRUGS (1)
  1. SUTENT [Suspect]
     Active Substance: SUNITINIB MALATE
     Dosage: 25 MG, CYCLIC [1 CAP BY MOUTH ONCE DAILY FOR 4 WEEKS THEN 2 WEEKS OFF]
     Route: 048
     Dates: start: 20170725, end: 20170826

REACTIONS (5)
  - Haemorrhage [Unknown]
  - Diarrhoea [Not Recovered/Not Resolved]
  - Full blood count decreased [Unknown]
  - Neoplasm progression [Unknown]
  - Faeces discoloured [Unknown]
